FAERS Safety Report 12296739 (Version 3)
Quarter: 2016Q2

REPORT INFORMATION
  Report Type: Spontaneous
  Country: JP (occurrence: JP)
  Receive Date: 20160422
  Receipt Date: 20160512
  Transmission Date: 20160815
  Serious: Yes (Other)
  Sender: FDA-Public Use
  Company Number: JP-009507513-1604JPN014438

PATIENT
  Sex: Female
  Weight: 51.7 kg

DRUGS (26)
  1. GLIMEPIRIDE. [Concomitant]
     Active Substance: GLIMEPIRIDE
     Dosage: 1 MG PER DAY
  2. INSULIN [Concomitant]
     Active Substance: INSULIN NOS
     Dosage: 18 IU, UNK
  3. VOGLIBOSE [Suspect]
     Active Substance: VOGLIBOSE
     Dosage: 0.9 MG PER DAY
     Route: 048
  4. PREGABALIN. [Concomitant]
     Active Substance: PREGABALIN
     Dosage: UNK
  5. INSULIN [Concomitant]
     Active Substance: INSULIN NOS
     Dosage: 6 IU, UNK
  6. INSULIN [Concomitant]
     Active Substance: INSULIN NOS
     Dosage: 6 IU, UNK
  7. ATORVASTATIN CALCIUM. [Concomitant]
     Active Substance: ATORVASTATIN CALCIUM
     Dosage: UNK
  8. INSULIN [Concomitant]
     Active Substance: INSULIN NOS
     Dosage: 8 IU, UNK
  9. INSULIN [Concomitant]
     Active Substance: INSULIN NOS
     Dosage: 12 IU, UNK
  10. PREDNISOLONE. [Suspect]
     Active Substance: PREDNISOLONE
     Indication: AUTOIMMUNE HAEMOLYTIC ANAEMIA
     Dosage: UNK
     Route: 048
  11. DILTIAZEM HYDROCHLORIDE. [Concomitant]
     Active Substance: DILTIAZEM HYDROCHLORIDE
     Dosage: UNK
  12. INSULIN [Concomitant]
     Active Substance: INSULIN NOS
     Dosage: 14 IU, UNK
  13. GLACTIV [Suspect]
     Active Substance: SITAGLIPTIN
     Indication: TYPE 2 DIABETES MELLITUS
     Dosage: 50 MG ONCE A DAY
     Route: 048
  14. GLACTIV [Suspect]
     Active Substance: SITAGLIPTIN
     Dosage: 50 MG ONCE A DAY
     Route: 048
  15. NICORANDIL [Concomitant]
     Active Substance: NICORANDIL
     Dosage: UNK
  16. NITROGLYCERIN. [Concomitant]
     Active Substance: NITROGLYCERIN
     Dosage: UNK
  17. WARFARIN POTASSIUM [Concomitant]
     Active Substance: WARFARIN POTASSIUM
     Dosage: UNK
  18. GLIMEPIRIDE. [Concomitant]
     Active Substance: GLIMEPIRIDE
     Dosage: 2 MG, UNK
  19. INSULIN [Concomitant]
     Active Substance: INSULIN NOS
     Dosage: 10 IU, UNK
  20. PIOGLITAZONE. [Concomitant]
     Active Substance: PIOGLITAZONE
     Dosage: UNK
  21. PIOGLITAZONE. [Concomitant]
     Active Substance: PIOGLITAZONE
     Dosage: 30 MG PER DAY
  22. ASPIRIN. [Concomitant]
     Active Substance: ASPIRIN
     Dosage: UNK
  23. INSULIN [Concomitant]
     Active Substance: INSULIN NOS
     Dosage: 4 IU, UNK
  24. INSULIN [Concomitant]
     Active Substance: INSULIN NOS
     Dosage: 10 IU, UNK
  25. INSULIN [Concomitant]
     Active Substance: INSULIN NOS
     Dosage: 8 IU, UNK
  26. INSULIN [Concomitant]
     Active Substance: INSULIN NOS
     Dosage: 16 IU, UNK

REACTIONS (2)
  - Pneumatosis intestinalis [Recovered/Resolved]
  - Hyperglycaemia [Unknown]
